FAERS Safety Report 15669070 (Version 1)
Quarter: 2018Q4

REPORT INFORMATION
  Report Type: Other
  Country: CA (occurrence: CA)
  Receive Date: 20181129
  Receipt Date: 20181129
  Transmission Date: 20190205
  Serious: Yes (Hospitalization, Other)
  Sender: FDA-Public Use
  Company Number: CA-LUPIN PHARMACEUTICALS INC.-2018-08406

PATIENT
  Age: 52 Year
  Sex: Female

DRUGS (6)
  1. CRINONE [Suspect]
     Active Substance: PROGESTERONE
     Indication: MENOPAUSE
     Dosage: UNK
     Route: 065
  2. PRASTERONE [Suspect]
     Active Substance: PRASTERONE
     Indication: PRODUCT USED FOR UNKNOWN INDICATION
     Dosage: UNK
     Route: 067
  3. BUDESONIDE. [Suspect]
     Active Substance: BUDESONIDE
     Indication: PRODUCT USED FOR UNKNOWN INDICATION
     Dosage: UNK
     Route: 065
  4. CLARITIN [Concomitant]
     Active Substance: LORATADINE
     Indication: PRODUCT USED FOR UNKNOWN INDICATION
     Dosage: UNK
     Route: 065
  5. ESTRADIOL. [Suspect]
     Active Substance: ESTRADIOL
     Indication: PRODUCT USED FOR UNKNOWN INDICATION
     Dosage: UNK
     Route: 065
  6. LORATADINE. [Suspect]
     Active Substance: LORATADINE
     Indication: PRODUCT USED FOR UNKNOWN INDICATION
     Dosage: UNK
     Route: 048

REACTIONS (9)
  - Head discomfort [Unknown]
  - Butterfly rash [Unknown]
  - Cellulitis [Unknown]
  - Periorbital oedema [Unknown]
  - Tinnitus [Unknown]
  - Feeling hot [Unknown]
  - Swelling face [Unknown]
  - Photosensitivity reaction [Unknown]
  - Rash [Unknown]
